FAERS Safety Report 10130247 (Version 2)
Quarter: 2014Q2

REPORT INFORMATION
  Report Type: Spontaneous
  Country: US (occurrence: US)
  Receive Date: 20140428
  Receipt Date: 20140430
  Transmission Date: 20141212
  Serious: No
  Sender: FDA-Public Use
  Company Number: US-BAYER-2014-058569

PATIENT
  Age: 76 Year
  Sex: Female
  Weight: 82 kg

DRUGS (1)
  1. ALEVE TABLET [Suspect]
     Dosage: 1 DF, QD
     Route: 048

REACTIONS (1)
  - Mouth ulceration [Recovered/Resolved]
